FAERS Safety Report 8992290 (Version 3)
Quarter: 2013Q1

REPORT INFORMATION
  Report Type: Report from Study
  Country: US (occurrence: US)
  Receive Date: 20121231
  Receipt Date: 20130110
  Transmission Date: 20140127
  Serious: No
  Sender: FDA-Public Use
  Company Number: US-VERTEX PHARMACEUTICALS INC.-2012-026609

PATIENT
  Age: 52 Year
  Sex: Female
  Weight: 68 kg

DRUGS (3)
  1. VX-950 (TELAPREVIR) [Suspect]
     Indication: HEPATITIS C
     Dosage: 750 MG, TID
     Route: 048
     Dates: start: 20121219, end: 20121219
  2. REBETOL [Suspect]
     Indication: HEPATITIS C
     Dosage: 400 MG, BID
     Route: 048
     Dates: start: 20121219, end: 20121219
  3. PEGINTRON                          /01543001/ [Suspect]
     Indication: HEPATITIS C
     Dosage: 0.5 ML, QW
     Route: 058
     Dates: start: 20121219, end: 20121219

REACTIONS (7)
  - Influenza [Unknown]
  - Vomiting projectile [Recovered/Resolved]
  - Muscle tightness [Recovered/Resolved]
  - Burning sensation [Not Recovered/Not Resolved]
  - Pain [Unknown]
  - Cold sweat [Not Recovered/Not Resolved]
  - Loss of consciousness [Recovered/Resolved]
